FAERS Safety Report 7876562-9 (Version None)
Quarter: 2011Q4

REPORT INFORMATION
  Report Type: 
  Country: None (occurrence: None)
  Receive Date: 20111031
  Receipt Date: 20111020
  Transmission Date: 20120403
  Serious: Yes (Hospitalization, Disabling, Other)
  Sender: FDA-Public Use
  Company Number: US-ELI_LILLY_AND_COMPANY-US201110005902

PATIENT
  Sex: Male

DRUGS (5)
  1. HUMULIN N [Suspect]
     Indication: TYPE 1 DIABETES MELLITUS
     Dosage: SLIDING SCALE
     Route: 065
     Dates: start: 19750101, end: 20060101
  2. HUMALOG MIX 75/25 [Suspect]
     Indication: TYPE 1 DIABETES MELLITUS
  3. HUMALOG [Suspect]
     Indication: TYPE 1 DIABETES MELLITUS
     Dosage: SLIDING SCALE
     Route: 058
     Dates: start: 20060101
  4. HUMULIN R [Suspect]
     Indication: TYPE 1 DIABETES MELLITUS
     Dosage: SLIDING SCALE
     Route: 065
     Dates: start: 19800101, end: 20060101
  5. SIMVASTATIN [Concomitant]
     Dosage: UNK

REACTIONS (10)
  - THYROID DISORDER [None]
  - DRUG DISPENSING ERROR [None]
  - BLOOD GLUCOSE DECREASED [None]
  - UNDERDOSE [None]
  - MENISCUS LESION [None]
  - ACETABULUM FRACTURE [None]
  - BLOOD GLUCOSE INCREASED [None]
  - ROAD TRAFFIC ACCIDENT [None]
  - NERVE INJURY [None]
  - DRUG DOSE OMISSION [None]
